FAERS Safety Report 4301833-2 (Version None)
Quarter: 2004Q1

REPORT INFORMATION
  Report Type: 
  Country: None (occurrence: None)
  Receive Date: 20040223
  Receipt Date: 20020514
  Transmission Date: 20041129
  Serious: Yes (Hospitalization, Disabling, Other)
  Sender: FDA-Public Use
  Company Number: WAES 0205USA01794

PATIENT
  Age: 48 Year
  Sex: Female
  Weight: 205 kg

DRUGS (13)
  1. VENTOLIN [Concomitant]
  2. TENORMIN [Concomitant]
     Dates: start: 19850901
  3. VASOTEC [Concomitant]
     Route: 048
     Dates: start: 19850901
  4. LODINE XL [Concomitant]
  5. LASIX [Concomitant]
     Dates: start: 19850801
  6. DITROPAN [Concomitant]
  7. K-DUR 10 [Concomitant]
  8. QUININE SULFATE [Concomitant]
  9. VIOXX [Suspect]
     Indication: JOINT INJURY
     Route: 048
     Dates: start: 20000526, end: 20010630
  10. VIOXX [Suspect]
     Route: 048
     Dates: start: 20010701, end: 20011025
  11. VIOXX [Suspect]
     Indication: MENISCUS LESION
     Route: 048
     Dates: start: 20000526, end: 20010630
  12. VIOXX [Suspect]
     Route: 048
     Dates: start: 20010701, end: 20011025
  13. ULTRAM [Concomitant]

REACTIONS (31)
  - ABDOMINAL PAIN [None]
  - ABDOMINAL PAIN UPPER [None]
  - ADNEXA UTERI MASS [None]
  - ANXIETY [None]
  - AZOTAEMIA [None]
  - BURNING SENSATION [None]
  - CANDIDIASIS [None]
  - CARDIAC FAILURE CONGESTIVE [None]
  - CELLULITIS [None]
  - ENDOMETRIAL DISORDER [None]
  - EPISTAXIS [None]
  - EYE DISORDER [None]
  - FISTULA [None]
  - HYPERTENSION [None]
  - IRRITABLE BOWEL SYNDROME [None]
  - LIMB DISCOMFORT [None]
  - MENISCUS LESION [None]
  - MENORRHAGIA [None]
  - MOOD SWINGS [None]
  - NEUROPATHIC PAIN [None]
  - NON-CARDIAC CHEST PAIN [None]
  - OEDEMA PERIPHERAL [None]
  - PALPITATIONS [None]
  - PARAESTHESIA [None]
  - PEAU D'ORANGE [None]
  - PICKWICKIAN SYNDROME [None]
  - PNEUMONIA [None]
  - POSTMENOPAUSAL HAEMORRHAGE [None]
  - PULMONARY OEDEMA [None]
  - RETCHING [None]
  - WEIGHT INCREASED [None]
